FAERS Safety Report 20137509 (Version 2)
Quarter: 2021Q4

REPORT INFORMATION
  Report Type: Report from Study
  Country: BE (occurrence: BE)
  Receive Date: 20211201
  Receipt Date: 20211217
  Transmission Date: 20220303
  Serious: Yes (Hospitalization)
  Sender: FDA-Public Use
  Company Number: BE-ABBVIE-21K-013-4180272-00

PATIENT
  Sex: Male
  Weight: 105 kg

DRUGS (13)
  1. CARBIDOPA\LEVODOPA [Suspect]
     Active Substance: CARBIDOPA\LEVODOPA
     Indication: Parkinson^s disease
     Route: 050
     Dates: start: 20170117
  2. CARBIDOPA\LEVODOPA [Suspect]
     Active Substance: CARBIDOPA\LEVODOPA
     Dosage: MD 5.5 ML; CD 4.4 ML/HR DURING 16 HOURS; ED 2.5 ML
     Route: 050
     Dates: start: 20210409, end: 20210602
  3. CARBIDOPA\LEVODOPA [Suspect]
     Active Substance: CARBIDOPA\LEVODOPA
     Dosage: MD 5.5 ML; CD 4.6 ML/HR DURING 16 HOURS; ED 2.5 ML
     Route: 050
     Dates: start: 20210602, end: 20210727
  4. CARBIDOPA\LEVODOPA [Suspect]
     Active Substance: CARBIDOPA\LEVODOPA
     Dosage: MD 6.0 ML; CD 4.8 ML/HR DURING 16 HOURS; ED 2.5 ML
     Route: 050
     Dates: start: 20210727, end: 20210929
  5. CARBIDOPA\LEVODOPA [Suspect]
     Active Substance: CARBIDOPA\LEVODOPA
     Dosage: MD 6.0 ML; CD 4.8 ML/HR DURING 16 HOURS; ED 3.0 ML
     Route: 050
     Dates: start: 20210929
  6. BEFACT [Concomitant]
     Indication: Product used for unknown indication
     Dosage: AT 8.00 HOUR
  7. TAMSULOSIN HYDROCHLORIDE [Concomitant]
     Active Substance: TAMSULOSIN HYDROCHLORIDE
     Indication: Product used for unknown indication
     Dosage: AT 8.00 HOUR
  8. BENSERAZIDE\LEVODOPA [Concomitant]
     Active Substance: BENSERAZIDE\LEVODOPA
     Indication: Product used for unknown indication
     Dosage: AT 20.00 HOUR
  9. BENSERAZIDE\LEVODOPA [Concomitant]
     Active Substance: BENSERAZIDE\LEVODOPA
     Route: 048
  10. BENSERAZIDE\LEVODOPA [Concomitant]
     Active Substance: BENSERAZIDE\LEVODOPA
     Indication: Product used for unknown indication
     Dosage: 6.30;8.15;10.30;12.30;15.30;17.00 HOUR
  11. PANTOMED [Concomitant]
     Indication: Product used for unknown indication
     Dosage: AT 8.00 HOUR
  12. OXYCONTIN [Concomitant]
     Active Substance: OXYCODONE HYDROCHLORIDE
     Indication: Product used for unknown indication
     Dosage: AT 8.00 HOUR
  13. LAXIS [Concomitant]
     Indication: Product used for unknown indication
     Dosage: AT 8.00 HOUR

REACTIONS (4)
  - Hospitalisation [Unknown]
  - COVID-19 [Unknown]
  - Dysphagia [Unknown]
  - Speech disorder [Unknown]
